FAERS Safety Report 18320288 (Version 1)
Quarter: 2020Q3

REPORT INFORMATION
  Report Type: Spontaneous
  Country: DE (occurrence: DE)
  Receive Date: 20200928
  Receipt Date: 20200928
  Transmission Date: 20201103
  Serious: Yes (Other)
  Sender: FDA-Public Use
  Company Number: DE-PFIZER INC-2020370516

PATIENT
  Age: 14 Year
  Sex: Female

DRUGS (4)
  1. ADRIAMYCIN [Suspect]
     Active Substance: DOXORUBICIN HYDROCHLORIDE
     Indication: OSTEOSARCOMA
     Dosage: UNK (FROM 10 WEEKS PRIOR TO SURGERY UP TO 14 WEEKS POST SURGERY)
  2. METHOTREXATE SODIUM. [Suspect]
     Active Substance: METHOTREXATE SODIUM
     Indication: OSTEOSARCOMA
     Dosage: UNK (FROM 10 WEEKS PRIOR TO SURGERY UP TO 14 WEEKS POST SURGERY)
  3. IFOSFAMIDE. [Suspect]
     Active Substance: IFOSFAMIDE
     Indication: OSTEOSARCOMA
     Dosage: UNK (FROM 10 WEEKS PRIOR TO SURGERY UP TO 14 WEEKS POST SURGERY)
  4. CISPLATIN. [Suspect]
     Active Substance: CISPLATIN
     Indication: OSTEOSARCOMA
     Dosage: UNK (FROM 10 WEEKS PRIOR TO SURGERY UP TO 14 WEEKS POST SURGERY)

REACTIONS (2)
  - Osteonecrosis [Recovered/Resolved]
  - Renal tubular disorder [Unknown]
